FAERS Safety Report 9301699 (Version 2)
Quarter: 2013Q3

REPORT INFORMATION
  Report Type: Report from Study
  Country: DE (occurrence: TR)
  Receive Date: 20130521
  Receipt Date: 20130918
  Transmission Date: 20140515
  Serious: Yes (Death)
  Sender: FDA-Public Use
  Company Number: DE-ACTELION-A-US2013-83562

PATIENT
  Age: 49 Year
  Sex: Female

DRUGS (4)
  1. VENTAVIS [Suspect]
     Indication: PULMONARY HYPERTENSION
     Dosage: UNK
     Route: 055
     Dates: start: 20120829
  2. SILDENAFIL [Concomitant]
  3. CLEXANE [Concomitant]
  4. LOSARTAN [Concomitant]

REACTIONS (1)
  - Pulmonary hypertension [Fatal]
